FAERS Safety Report 10359021 (Version 2)
Quarter: 2014Q3

REPORT INFORMATION
  Report Type: Spontaneous
  Country: GB (occurrence: GB)
  Receive Date: 20140804
  Receipt Date: 20140812
  Transmission Date: 20150326
  Serious: Yes (Hospitalization, Disabling, Other)
  Sender: FDA-Public Use
  Company Number: GB-ACCORD-025096

PATIENT
  Age: 70 Year
  Sex: Female
  Weight: 85 kg

DRUGS (2)
  1. SIMVASTATIN. [Suspect]
     Active Substance: SIMVASTATIN
     Indication: MYOCARDIAL ISCHAEMIA
     Route: 048
     Dates: start: 2011, end: 20140718
  2. CLARITHROMYCIN/CLARITHROMYCIN LACTOBIONATE [Interacting]
     Active Substance: CLARITHROMYCIN LACTOBIONATE
     Indication: LOWER RESPIRATORY TRACT INFECTION
     Dates: start: 20140702

REACTIONS (5)
  - Myositis [Unknown]
  - Medication error [None]
  - Immobile [Unknown]
  - Drug interaction [Unknown]
  - Lower respiratory tract infection [None]

NARRATIVE: CASE EVENT DATE: 20140714
